FAERS Safety Report 9683521 (Version 2)
Quarter: 2013Q4

REPORT INFORMATION
  Report Type: Report from Study
  Country: DE (occurrence: DE)
  Receive Date: 20131112
  Receipt Date: 20131112
  Transmission Date: 20140711
  Serious: Yes (Hospitalization, Other)
  Sender: FDA-Public Use
  Company Number: DE-ABBVIE-13P-062-1092838-00

PATIENT
  Age: 14 Year
  Sex: Female

DRUGS (3)
  1. HUMIRA [Suspect]
     Indication: RHEUMATOID ARTHRITIS
     Route: 058
     Dates: start: 20111031
  2. LISINOPRIL [Concomitant]
     Indication: HYPERTENSION
     Dates: start: 201212
  3. IBUPROFEN [Concomitant]
     Indication: RHEUMATOID ARTHRITIS
     Dates: start: 20090601, end: 20130513

REACTIONS (5)
  - Concussion [Recovered/Resolved]
  - Upper respiratory tract infection [Recovered/Resolved]
  - Otitis media [Recovered/Resolved]
  - Upper respiratory tract infection [Recovered/Resolved]
  - Ear tube insertion [Recovered/Resolved]
